FAERS Safety Report 4909221-2 (Version None)
Quarter: 2006Q1

REPORT INFORMATION
  Report Type: 
  Country: None (occurrence: None)
  Receive Date: 20060213
  Receipt Date: 20051207
  Transmission Date: 20060701
  Serious: No
  Sender: FDA-Public Use
  Company Number: JP-AVENTIS-200513714JP

PATIENT
  Age: 78 Year
  Sex: Female
  Weight: 54 kg

DRUGS (8)
  1. TAXOTERE [Suspect]
     Indication: UTERINE CANCER
     Route: 041
     Dates: start: 20051004
  2. NIVADIL [Concomitant]
     Indication: HYPERTENSION
     Route: 048
  3. BLOPRESS [Concomitant]
     Indication: HYPERTENSION
     Route: 048
  4. TAKEPRON [Concomitant]
     Indication: GASTRIC ULCER
     Route: 048
  5. NEUROTROPIN [Concomitant]
     Indication: OSTEOARTHRITIS
     Dosage: DOSE: 8 TABLETS/DAY
     Route: 048
  6. CYANOCOBALAMIN [Concomitant]
     Indication: NEUROSIS
     Route: 048
  7. DECADRON SRC [Concomitant]
     Indication: PREMEDICATION
     Dates: start: 20051004
  8. NASEA [Concomitant]
     Indication: PREMEDICATION
     Dates: start: 20051004

REACTIONS (7)
  - CARDIOTOXICITY [None]
  - DYSPNOEA [None]
  - NASOPHARYNGITIS [None]
  - PALPITATIONS [None]
  - PYREXIA [None]
  - SUPRAVENTRICULAR TACHYCARDIA [None]
  - VENTRICULAR DYSFUNCTION [None]
